FAERS Safety Report 8514290-7 (Version None)
Quarter: 2012Q2

REPORT INFORMATION
  Report Type: 
  Country: None (occurrence: None)
  Receive Date: 20120406
  Receipt Date: 20120126
  Transmission Date: 20120825
  Serious: Yes (Hospitalization)
  Sender: FDA-Public Use
  Company Number: US-CYPR-2011-000081

PATIENT
  Sex: Male
  Weight: 132 kg

DRUGS (13)
  1. ASPIRIN [Suspect]
     Indication: CORONARY ARTERY DISEASE
     Dosage: 325 MG, ORAL
     Route: 048
     Dates: start: 20091209, end: 20110801
  2. LANTUS [Concomitant]
  3. DETROL [Concomitant]
  4. ZOCOR [Concomitant]
  5. PLAVIX [Concomitant]
  6. COREG [Concomitant]
  7. BUMEX [Concomitant]
  8. GLIMEPIRIDE [Concomitant]
  9. CLOPIDOGREL OR PLACEBO (BRISTOL-MYERS SQUIBB/SANOFI-AVENTIS) [Suspect]
     Indication: ANTIPLATELET THERAPY
     Dosage: 75 MG, ORAL
     Route: 048
     Dates: start: 20101208
  10. LISINOPRIL [Concomitant]
  11. NEURONTIN [Concomitant]
  12. EFFEXOR [Concomitant]
  13. CYPHER STENT [Concomitant]

REACTIONS (1)
  - DIZZINESS [None]
